FAERS Safety Report 4654210-9 (Version None)
Quarter: 2005Q2

REPORT INFORMATION
  Report Type: 
  Country: None (occurrence: None)
  Receive Date: 20050404
  Receipt Date: 20041214
  Transmission Date: 20051028
  Serious: No
  Sender: FDA-Public Use
  Company Number: USA041286135

PATIENT
  Age: 85 Year
  Sex: Female

DRUGS (3)
  1. CYMBALTA [Suspect]
     Indication: DEPRESSION
     Dosage: 60 MG
  2. CYMBALTA [Suspect]
     Indication: DRUG RESISTANCE
     Dosage: 60 MG
  3. METHADONE [Concomitant]

REACTIONS (4)
  - BALANCE DISORDER [None]
  - EAR DISORDER [None]
  - FALL [None]
  - TINNITUS [None]
